FAERS Safety Report 12516909 (Version 1)
Quarter: 2016Q2

REPORT INFORMATION
  Report Type: Spontaneous
  Country: GB (occurrence: GB)
  Receive Date: 20160630
  Receipt Date: 20160630
  Transmission Date: 20160815
  Serious: Yes (Hospitalization, Disabling)
  Sender: FDA-Public Use
  Company Number: GB-TEVA-671135ACC

PATIENT
  Age: 51 Year
  Sex: Female
  Weight: 62 kg

DRUGS (7)
  1. ATORVASTATIN [Suspect]
     Active Substance: ATORVASTATIN
     Dates: end: 20160503
  2. ZONISAMIDE. [Concomitant]
     Active Substance: ZONISAMIDE
     Dosage: 200MG MORNING, 100MG MIDDAY, 200MG NOCTE
  3. KEPPRA [Concomitant]
     Active Substance: LEVETIRACETAM
  4. LEVETIRACETAM. [Concomitant]
     Active Substance: LEVETIRACETAM
     Dosage: 4000 MILLIGRAM DAILY;
  5. FRISIUM [Concomitant]
     Active Substance: CLOBAZAM
     Dosage: AS NECESSARY
  6. TEGRETOL XR [Concomitant]
     Active Substance: CARBAMAZEPINE
  7. ATORVASTATIN [Suspect]
     Active Substance: ATORVASTATIN
     Dates: start: 20151120

REACTIONS (17)
  - Syncope [Unknown]
  - Dizziness [Unknown]
  - Influenza like illness [Unknown]
  - Asthenia [Unknown]
  - Balance disorder [Unknown]
  - Nasopharyngitis [Unknown]
  - Muscle rigidity [Unknown]
  - Visual impairment [Unknown]
  - Muscular weakness [Unknown]
  - Vision blurred [Unknown]
  - Fatigue [Unknown]
  - Epilepsy [Unknown]
  - Amnesia [Unknown]
  - Paralysis [Unknown]
  - Tonic clonic movements [Unknown]
  - Speech disorder [Unknown]
  - Change in seizure presentation [Unknown]

NARRATIVE: CASE EVENT DATE: 20151120
